FAERS Safety Report 8203343-9 (Version None)
Quarter: 2012Q1

REPORT INFORMATION
  Report Type: 
  Country: None (occurrence: None)
  Receive Date: 20120312
  Receipt Date: 20120306
  Transmission Date: 20120608
  Serious: Yes (Life-Threatening)
  Sender: FDA-Public Use
  Company Number: FR-ASTRAZENECA-2012SE15619

PATIENT
  Age: 19020 Day
  Sex: Male

DRUGS (6)
  1. AMOXICILLIN TRIHYDRATE [Concomitant]
     Dates: start: 20120201
  2. GENTAMICIN [Concomitant]
     Dates: start: 20120201
  3. FLAGYL [Concomitant]
     Dates: start: 20120201
  4. DIPRIVAN [Suspect]
     Route: 042
     Dates: start: 20120207, end: 20120207
  5. CELOCURINE [Suspect]
     Route: 042
     Dates: start: 20120207, end: 20120207
  6. CLAFORAN [Concomitant]
     Dates: start: 20120201

REACTIONS (1)
  - SHOCK [None]
